FAERS Safety Report 5520565-6 (Version None)
Quarter: 2007Q4

REPORT INFORMATION
  Report Type: 
  Country: None (occurrence: None)
  Receive Date: 20071115
  Receipt Date: 20071106
  Transmission Date: 20080405
  Serious: Yes (Other)
  Sender: FDA-Public Use
  Company Number: SPV1-2007-04835

PATIENT
  Sex: Male

DRUGS (2)
  1. VYVANSE [Suspect]
     Dosage: 60 MG, 1X/DAY:QD, ORAL ; 30 MG, 1X/DAY:QD, ORAL
     Route: 048
     Dates: start: 20071029, end: 20070101
  2. VYVANSE [Suspect]
     Dosage: 60 MG, 1X/DAY:QD, ORAL ; 30 MG, 1X/DAY:QD, ORAL
     Route: 048
     Dates: start: 20070101, end: 20071028

REACTIONS (3)
  - HALLUCINATION [None]
  - HYPERTENSION [None]
  - TACHYCARDIA [None]
